FAERS Safety Report 14893450 (Version 1)
Quarter: 2018Q2

REPORT INFORMATION
  Report Type: Spontaneous
  Country: CZ (occurrence: CZ)
  Receive Date: 20180514
  Receipt Date: 20180514
  Transmission Date: 20180711
  Serious: Yes (Hospitalization, Other)
  Sender: FDA-Public Use
  Company Number: CZ-MYLANLABS-2018M1031213

PATIENT
  Sex: Male

DRUGS (13)
  1. HUMULIN R [Concomitant]
     Active Substance: INSULIN HUMAN
     Indication: TYPE 2 DIABETES MELLITUS
     Dosage: 8 IU, QD
     Route: 058
  2. HUMULIN R [Concomitant]
     Active Substance: INSULIN HUMAN
     Dosage: 16 IU, QHS
     Route: 058
  3. HUMULIN N [Concomitant]
     Active Substance: INSULIN HUMAN
     Dosage: 12 IU, QHS
     Route: 058
  4. HUMULIN R [Concomitant]
     Active Substance: INSULIN HUMAN
     Dosage: 16 IU, QD
     Route: 058
  5. HUMULIN R [Concomitant]
     Active Substance: INSULIN HUMAN
     Dosage: 8 IU, QHS
     Route: 058
  6. HUMULIN N [Concomitant]
     Active Substance: INSULIN HUMAN
     Indication: TYPE 2 DIABETES MELLITUS
     Dosage: 12 IU, QHS
     Route: 058
  7. CONCOR COR [Suspect]
     Active Substance: BISOPROLOL FUMARATE
     Indication: CARDIAC FAILURE
     Dosage: 5 MG, UNK
     Route: 065
  8. AGEN [Suspect]
     Active Substance: AMLODIPINE BESYLATE
     Indication: CARDIAC FAILURE
     Dosage: 10 OT, QD
     Route: 065
  9. VEROSPIRON [Suspect]
     Active Substance: SPIRONOLACTONE
     Indication: CARDIAC FAILURE
     Dosage: 25 MG, BID
     Route: 065
  10. ATORVASTATIN [Suspect]
     Active Substance: ATORVASTATIN
     Indication: CARDIAC FAILURE
     Dosage: 10 MG, QHS
     Route: 065
  11. HUMULIN R [Concomitant]
     Active Substance: INSULIN HUMAN
     Dosage: 8 IU, QD
     Route: 058
  12. FURON                              /00032601/ [Suspect]
     Active Substance: FUROSEMIDE
     Indication: CARDIAC FAILURE
     Dosage: 40 MG, QD
     Route: 065
  13. HUMULIN R [Concomitant]
     Active Substance: INSULIN HUMAN
     Dosage: 20 IU, QD
     Route: 058

REACTIONS (3)
  - Hypertension [Unknown]
  - Pulmonary oedema [Unknown]
  - Dyspnoea [Unknown]
